FAERS Safety Report 19399496 (Version 1)
Quarter: 2021Q2

REPORT INFORMATION
  Report Type: Report from Study
  Country: US (occurrence: US)
  Receive Date: 20210610
  Receipt Date: 20210610
  Transmission Date: 20210717
  Serious: Yes (Hospitalization)
  Sender: FDA-Public Use
  Company Number: US-BIOGEN-2020BI00901442

PATIENT
  Age: 62 Year
  Sex: Female

DRUGS (10)
  1. VITAMIN B12 [Concomitant]
     Active Substance: CYANOCOBALAMIN
     Indication: DECREASED IMMUNE RESPONSIVENESS
     Route: 065
  2. TECFIDERA [Suspect]
     Active Substance: DIMETHYL FUMARATE
     Indication: MULTIPLE SCLEROSIS
     Dosage: MAINTENANCE DOSE
     Route: 065
     Dates: start: 20170601
  3. TECFIDERA [Suspect]
     Active Substance: DIMETHYL FUMARATE
     Route: 065
     Dates: end: 20210414
  4. ASPIRIN. [Concomitant]
     Active Substance: ASPIRIN
     Indication: PRODUCT USED FOR UNKNOWN INDICATION
     Route: 065
  5. BIOTIN [Concomitant]
     Active Substance: BIOTIN
     Indication: ALOPECIA
     Route: 065
  6. IBANDRONATE NA [Concomitant]
     Indication: OSTEOPOROSIS
     Route: 065
  7. CITALOPRAM [Concomitant]
     Active Substance: CITALOPRAM HYDROBROMIDE
     Indication: PRODUCT USED FOR UNKNOWN INDICATION
     Route: 065
  8. VITAMIN C [Concomitant]
     Active Substance: ASCORBIC ACID
     Indication: DECREASED IMMUNE RESPONSIVENESS
     Route: 065
  9. VITAMIN E [Concomitant]
     Active Substance: .ALPHA.-TOCOPHEROL
     Indication: DECREASED IMMUNE RESPONSIVENESS
     Route: 065
  10. VITAMIN D3 [Concomitant]
     Active Substance: CHOLECALCIFEROL
     Indication: DECREASED IMMUNE RESPONSIVENESS
     Route: 065

REACTIONS (17)
  - Aphasia [Recovered/Resolved]
  - Dysstasia [Unknown]
  - Blindness [Recovered/Resolved]
  - Loss of consciousness [Recovered/Resolved]
  - Fatigue [Unknown]
  - Vomiting [Unknown]
  - Incoherent [Unknown]
  - Back pain [Unknown]
  - Pain in extremity [Unknown]
  - Head discomfort [Unknown]
  - Eyelid function disorder [Unknown]
  - Hypertension [Not Recovered/Not Resolved]
  - Memory impairment [Not Recovered/Not Resolved]
  - Drug interaction [Unknown]
  - Burning sensation [Unknown]
  - Multiple sclerosis relapse [Recovered/Resolved]
  - Fall [Recovered/Resolved]

NARRATIVE: CASE EVENT DATE: 201710
